FAERS Safety Report 18898553 (Version 2)
Quarter: 2021Q1

REPORT INFORMATION
  Report Type: Spontaneous
  Country: DE (occurrence: DE)
  Receive Date: 20210216
  Receipt Date: 20210304
  Transmission Date: 20210420
  Serious: Yes (Other)
  Sender: FDA-Public Use
  Company Number: DE-MYLANLABS-2021M1007660

PATIENT
  Sex: Female
  Weight: 86 kg

DRUGS (12)
  1. L?THYROX HEXAL [Concomitant]
     Active Substance: LEVOTHYROXINE SODIUM
     Dosage: UNK
  2. SIMVABETA [Concomitant]
     Active Substance: SIMVASTATIN
     Dosage: UNK
  3. RANIDURA T 300 MG, FILMTABLETTEN [Suspect]
     Active Substance: RANITIDINE HYDROCHLORIDE
     Indication: HYPERTENSION
     Dosage: 300 MILLIGRAM, QD (IN THE MORNINGS)
     Route: 048
     Dates: start: 20160204, end: 20180123
  4. MIRTAZAPIN 1 A PHARMA [Concomitant]
     Dosage: UNK
  5. RANITIDINE. [Suspect]
     Active Substance: RANITIDINE
     Indication: PRODUCT USED FOR UNKNOWN INDICATION
     Dosage: 300 MILLIGRAM, QD (IN THE MORNINGS)
     Dates: start: 20170719, end: 20190718
  6. RANIDURA T [Concomitant]
     Active Substance: RANITIDINE HYDROCHLORIDE
     Dosage: UNK
  7. NOVAMINSULFON [Concomitant]
     Active Substance: METAMIZOLE
     Dosage: UNK (DROPS)
  8. RANIDURA T 300 MG, FILMTABLETTEN [Suspect]
     Active Substance: RANITIDINE HYDROCHLORIDE
     Dosage: 300 MILLIGRAM 1 TO 2 (MORNING AND AFTERNOON)
     Route: 048
     Dates: start: 20160204, end: 2019
  9. SALBUTAMOL [Concomitant]
     Active Substance: ALBUTEROL
     Dosage: UNK (SALBUTAMOL RATIO N 200H)
  10. SIMVA [Concomitant]
     Active Substance: SIMVASTATIN
     Dosage: UNK
  11. TOPIRAMAT AUROBINDO [Concomitant]
     Active Substance: TOPIRAMATE
     Dosage: UNK
  12. ZANIPRESS [Concomitant]
     Active Substance: ENALAPRIL MALEATE\LERCANIDIPINE HYDROCHLORIDE
     Dosage: UNK

REACTIONS (3)
  - Mental impairment [Not Recovered/Not Resolved]
  - Quality of life decreased [Not Recovered/Not Resolved]
  - Fear of disease [Not Recovered/Not Resolved]

NARRATIVE: CASE EVENT DATE: 2019
